FAERS Safety Report 20907233 (Version 1)
Quarter: 2022Q2

REPORT INFORMATION
  Report Type: Report from Study
  Country: US (occurrence: US)
  Receive Date: 20220602
  Receipt Date: 20220602
  Transmission Date: 20220721
  Serious: Yes (Other)
  Sender: FDA-Public Use
  Company Number: US-CELGENE-USA-20220200321

PATIENT
  Age: 23 Year
  Sex: Female

DRUGS (1)
  1. ZEPOSIA [Suspect]
     Active Substance: OZANIMOD HYDROCHLORIDE
     Indication: Colitis ulcerative
     Dosage: 0.92 MILLIGRAM
     Route: 048
     Dates: start: 20220121

REACTIONS (7)
  - Seizure [Unknown]
  - Pyrexia [Unknown]
  - Eye pain [Unknown]
  - Abdominal distension [Unknown]
  - Abdominal pain upper [Unknown]
  - Disturbance in attention [Unknown]
  - Drug ineffective [Unknown]

NARRATIVE: CASE EVENT DATE: 20220124
